FAERS Safety Report 24331510 (Version 1)
Quarter: 2024Q3

REPORT INFORMATION
  Report Type: Spontaneous
  Country: SK (occurrence: SK)
  Receive Date: 20240918
  Receipt Date: 20240918
  Transmission Date: 20241016
  Serious: Yes (Other)
  Sender: CELLTRION
  Company Number: SK-CELLTRION INC.-2024SK022009

PATIENT

DRUGS (6)
  1. RITUXIMAB [Suspect]
     Active Substance: RITUXIMAB
     Indication: Rheumatoid arthritis
  2. RITUXIMAB [Suspect]
     Active Substance: RITUXIMAB
     Indication: Osteoporosis
  3. PREDNISOLONE [Suspect]
     Active Substance: PREDNISOLONE
     Indication: Rheumatoid arthritis
  4. PREDNISOLONE [Suspect]
     Active Substance: PREDNISOLONE
     Indication: Osteoporosis
  5. DENOSUMAB [Suspect]
     Active Substance: DENOSUMAB
     Indication: Rheumatoid arthritis
  6. DENOSUMAB [Suspect]
     Active Substance: DENOSUMAB
     Indication: Osteoporosis

REACTIONS (2)
  - Osteonecrosis of jaw [Recovered/Resolved]
  - Intentional product use issue [Unknown]
